FAERS Safety Report 16526741 (Version 1)
Quarter: 2019Q3

REPORT INFORMATION
  Report Type: Spontaneous
  Country: US (occurrence: US)
  Receive Date: 20190703
  Receipt Date: 20190703
  Transmission Date: 20191004
  Serious: Yes (Other)
  Sender: FDA-Public Use
  Company Number: US-JNJFOC-20190633124

PATIENT
  Sex: Male
  Weight: 81.72 kg

DRUGS (2)
  1. REMICADE [Suspect]
     Active Substance: INFLIXIMAB
     Route: 042
  2. REMICADE [Suspect]
     Active Substance: INFLIXIMAB
     Indication: CROHN^S DISEASE
     Route: 042
     Dates: start: 201010

REACTIONS (7)
  - Product use issue [Unknown]
  - Paraesthesia [Not Recovered/Not Resolved]
  - Muscle contracture [Not Recovered/Not Resolved]
  - Aggression [Unknown]
  - Stress fracture [Unknown]
  - Gastrointestinal hypermotility [Unknown]
  - Off label use [Unknown]

NARRATIVE: CASE EVENT DATE: 201010
